FAERS Safety Report 17797925 (Version 3)
Quarter: 2020Q3

REPORT INFORMATION
  Report Type: Spontaneous
  Country: US (occurrence: US)
  Receive Date: 20200518
  Receipt Date: 20200717
  Transmission Date: 20201102
  Serious: No
  Sender: FDA-Public Use
  Company Number: US-PFIZER INC-2020195656

PATIENT
  Age: 77 Year
  Sex: Female
  Weight: 58.97 kg

DRUGS (3)
  1. TOVIAZ [Suspect]
     Active Substance: FESOTERODINE FUMARATE
     Dosage: UNK (STRENGTH REPORTED AS ^8 G^)
  2. CELEBREX [Suspect]
     Active Substance: CELECOXIB
     Dosage: UNK (STRENGTH REPORTED AS ^100 G^)
  3. PREMARIN [Suspect]
     Active Substance: ESTROGENS, CONJUGATED
     Indication: HORMONE REPLACEMENT THERAPY
     Dosage: UNK (STRENGTH REPORTED AS ^0.3 G^)
     Dates: start: 1970

REACTIONS (3)
  - Dry mouth [Unknown]
  - Cough [Unknown]
  - Product prescribing error [Unknown]
